FAERS Safety Report 4977394-1 (Version None)
Quarter: 2006Q2

REPORT INFORMATION
  Report Type: 
  Country: None (occurrence: None)
  Receive Date: 20060413
  Receipt Date: 20060401
  Transmission Date: 20061013
  Serious: Yes (Other)
  Sender: FDA-Public Use
  Company Number: GXKR2006ES01871

PATIENT
  Age: 77 Year
  Sex: Male

DRUGS (3)
  1. AMOXICILLIN-CLAVULANIC ACID (NGX) (AMOXICILLIN, CLAVULANATE) [Suspect]
     Indication: RESPIRATORY TRACT INFECTION
     Dosage: 2 G, TID, INTRAVENOUS
     Route: 042
  2. PRIMIDONE [Concomitant]
  3. ANGIOTENSIN CONVERTING ENZYME BLOCKERS (NO INGREDIENT/SUBSTANCES) [Concomitant]

REACTIONS (3)
  - DRUG INTERACTION [None]
  - HEPATITIS ACUTE [None]
  - JAUNDICE [None]
